FAERS Safety Report 18148238 (Version 2)
Quarter: 2020Q3

REPORT INFORMATION
  Report Type: Report from Study
  Country: MX (occurrence: MX)
  Receive Date: 20200813
  Receipt Date: 20200829
  Transmission Date: 20201103
  Serious: Yes (Hospitalization, Other)
  Sender: FDA-Public Use
  Company Number: NVSC2020MX224493

PATIENT
  Sex: Female
  Weight: 55 kg

DRUGS (4)
  1. MICCIL [Concomitant]
     Indication: MICTURITION DISORDER
     Dosage: 1 MG, QD
     Route: 048
     Dates: start: 2016
  2. DIOVAN [Suspect]
     Active Substance: VALSARTAN
     Dosage: 1 DF, QD
     Route: 048
     Dates: start: 2017
  3. AMLODIPINE [Concomitant]
     Active Substance: AMLODIPINE BESYLATE
     Indication: BLOOD PRESSURE ABNORMAL
     Dosage: 1 DF, QD
     Route: 048
  4. DIOVAN [Suspect]
     Active Substance: VALSARTAN
     Indication: BLOOD PRESSURE ABNORMAL
     Dosage: 1 DF
     Route: 048
     Dates: start: 2014, end: 2017

REACTIONS (4)
  - Speech disorder [Not Recovered/Not Resolved]
  - Infarction [Recovered/Resolved]
  - Thrombosis [Recovered/Resolved]
  - Hemiplegia [Recovering/Resolving]

NARRATIVE: CASE EVENT DATE: 2016
